FAERS Safety Report 4646771-0 (Version None)
Quarter: 2005Q2

REPORT INFORMATION
  Report Type: 
  Country: None (occurrence: None)
  Receive Date: 20050331
  Receipt Date: 20041206
  Transmission Date: 20051028
  Serious: No
  Sender: FDA-Public Use
  Company Number: 04P-163-0282863-00

PATIENT
  Age: 72 Year
  Sex: Female
  Weight: 56.6996 kg

DRUGS (7)
  1. HUMIRA [Suspect]
     Indication: RHEUMATOID ARTHRITIS
     Dosage: 40 MG, 1 IN 1, SUBCUTANEOUS
     Route: 058
     Dates: start: 20040601
  2. EFEDITAB [Concomitant]
  3. ZETIA [Concomitant]
  4. ARNOL [Concomitant]
  5. DIRROPAN XL [Concomitant]
  6. ATORVASTATIN CALCIUM [Concomitant]
  7. TEMAZEPAM [Concomitant]

REACTIONS (1)
  - GASTROOESOPHAGEAL REFLUX DISEASE [None]
